FAERS Safety Report 12676409 (Version 1)
Quarter: 2016Q3

REPORT INFORMATION
  Report Type: Other
  Country: IT (occurrence: IT)
  Receive Date: 20160823
  Receipt Date: 20160823
  Transmission Date: 20161109
  Serious: Yes (Death, Congenital Anomaly, Other)
  Sender: FDA-Public Use
  Company Number: IT-NOVEL LABORATORIES, INC-2016-03777

PATIENT
  Sex: Male
  Weight: .15 kg

DRUGS (1)
  1. METHYLERGONOVINE MALEATE. [Suspect]
     Active Substance: METHYLERGONOVINE MALEATE
     Indication: ABORTION SPONTANEOUS
     Dosage: 1 ML GTT CONTAINING 0.250 MG OF ACTIVE DRUG, 20 DROPS 3 TIMES A DAY FOR 4?DAYS
     Route: 064

REACTIONS (2)
  - Sirenomelia [Fatal]
  - Foetal exposure during pregnancy [Fatal]
